FAERS Safety Report 12409247 (Version 3)
Quarter: 2016Q3

REPORT INFORMATION
  Report Type: Spontaneous
  Country: US (occurrence: US)
  Receive Date: 20160526
  Receipt Date: 20160919
  Transmission Date: 20161109
  Serious: No
  Sender: FDA-Public Use
  Company Number: US-MEDA-2016050059

PATIENT
  Age: 87 Year
  Sex: Female
  Weight: 66 kg

DRUGS (5)
  1. BABY ASPIRIN [Concomitant]
     Active Substance: ASPIRIN
     Route: 048
  2. XANAX [Concomitant]
     Active Substance: ALPRAZOLAM
     Route: 048
  3. BUMEX [Concomitant]
     Active Substance: BUMETANIDE
  4. DEMADEX [Suspect]
     Active Substance: TORSEMIDE
     Indication: FLUID RETENTION
     Route: 048
     Dates: start: 2010
  5. LASIX [Concomitant]
     Active Substance: FUROSEMIDE
     Indication: DIURETIC THERAPY
     Route: 048

REACTIONS (7)
  - Burning sensation [Not Recovered/Not Resolved]
  - Product quality issue [Unknown]
  - Limb discomfort [Not Recovered/Not Resolved]
  - Erythema [Not Recovered/Not Resolved]
  - Secretion discharge [Not Recovered/Not Resolved]
  - Peripheral swelling [Not Recovered/Not Resolved]
  - Weight increased [Not Recovered/Not Resolved]

NARRATIVE: CASE EVENT DATE: 2016
